FAERS Safety Report 24539903 (Version 1)
Quarter: 2024Q4

REPORT INFORMATION
  Report Type: Spontaneous
  Country: BR (occurrence: BR)
  Receive Date: 20241023
  Receipt Date: 20241023
  Transmission Date: 20250115
  Serious: Yes (Other)
  Sender: PFIZER
  Company Number: BR-PFIZER INC-202400284196

PATIENT
  Age: 61 Year
  Sex: Male

DRUGS (4)
  1. RITUXIMAB [Suspect]
     Active Substance: RITUXIMAB
     Indication: Diffuse large B-cell lymphoma
     Dosage: 638.75 MG, CYCLIC
     Dates: start: 20241002, end: 20241002
  2. DOXORUBICIN HYDROCHLORIDE [Concomitant]
     Active Substance: DOXORUBICIN HYDROCHLORIDE
     Dosage: UNK
     Dates: start: 20241002, end: 20241002
  3. CYCLOPHOSPHAMIDE [Concomitant]
     Active Substance: CYCLOPHOSPHAMIDE
     Dosage: UNK
     Dates: start: 20241002, end: 20241002
  4. VINCRISTINE [Concomitant]
     Active Substance: VINCRISTINE
     Dosage: UNK
     Dates: start: 20241002, end: 20241002

REACTIONS (6)
  - Flushing [Recovered/Resolved]
  - Dyspnoea [Recovered/Resolved]
  - Hypoxia [Recovered/Resolved]
  - Tremor [Recovered/Resolved]
  - Hypotension [Recovered/Resolved]
  - Tachycardia [Recovered/Resolved]

NARRATIVE: CASE EVENT DATE: 20241002
